FAERS Safety Report 23439581 (Version 2)
Quarter: 2024Q1

REPORT INFORMATION
  Report Type: Spontaneous
  Country: DE (occurrence: DE)
  Receive Date: 20240124
  Receipt Date: 20240209
  Transmission Date: 20240410
  Serious: Yes (Other)
  Sender: FDA-Public Use
  Company Number: DE-ANIPHARMA-2024-DE-000006

PATIENT
  Age: 51 Year
  Sex: Male
  Weight: 118 kg

DRUGS (20)
  1. CANDESARTAN [Suspect]
     Active Substance: CANDESARTAN
     Indication: Hypertension
     Dosage: MORNING 8MG, AFTERNOON 4MG AFTERNOON 4MG
     Route: 065
  2. CHLORPROTHIXENE [Suspect]
     Active Substance: CHLORPROTHIXENE
     Dosage: 100 MG DAILY
     Route: 065
  3. ZYPREXA [Suspect]
     Active Substance: OLANZAPINE
     Route: 065
  4. PROMETHAZINE HYDROCHLORIDE [Suspect]
     Active Substance: PROMETHAZINE HYDROCHLORIDE
     Route: 065
  5. FLUPENTIXOL [Suspect]
     Active Substance: FLUPENTIXOL
     Dosage: DOSE TEXT: MORNING: 5MG; EVENING: 6 MG; NIGHT: 2MG
     Route: 065
  6. CARIPRAZINE [Suspect]
     Active Substance: CARIPRAZINE
     Route: 065
  7. TAVOR (LORAZEPAM) [Suspect]
     Active Substance: LORAZEPAM
     Dosage: DOSE TEXT: 1MG IF NECESSARY FOR SEDATION/ANXIETY
     Route: 065
  8. ZELDOX [Suspect]
     Active Substance: ZIPRASIDONE
     Route: 065
  9. BROMAZEPAM [Suspect]
     Active Substance: BROMAZEPAM
     Dosage: DOSE TEXT: 3MG IF NECESSARY FOR SEDATION/ANXIETY
     Route: 065
  10. ABILIFY [Suspect]
     Active Substance: ARIPIPRAZOLE
     Route: 065
  11. NAPROXEN [Suspect]
     Active Substance: NAPROXEN
     Dosage: DOSE TEXT: 500MG IF NECESSARY FOR KNEE PAIN
     Route: 065
  12. SEROQUEL [Suspect]
     Active Substance: QUETIAPINE FUMARATE
     Dosage: DOSE TEXT: 25-50MG IF NECESSARY TO CALM DOWN / 100 MG DAILY
     Route: 065
  13. RISPERDAL [Suspect]
     Active Substance: RISPERIDONE
     Dosage: DOSE TEXT: MORNING 4MG, NIGHT 5MG NIGHT 5MG / UNK
     Route: 065
  14. PROPRANOLOL [Suspect]
     Active Substance: PROPRANOLOL HYDROCHLORIDE
     Route: 065
  15. RAMIPRIL [Suspect]
     Active Substance: RAMIPRIL
     Route: 065
  16. SILDENAFIL [Suspect]
     Active Substance: SILDENAFIL
     Route: 065
  17. NEBIVOLOL [Suspect]
     Active Substance: NEBIVOLOL
     Dosage: 2.5 MG DAILY
     Route: 065
  18. CLOZAPINE [Suspect]
     Active Substance: CLOZAPINE
     Route: 065
  19. MELATONIN [Suspect]
     Active Substance: MELATONIN
     Route: 065
  20. RABEPRAZOLE [Suspect]
     Active Substance: RABEPRAZOLE
     Dosage: 20 MG DAILY
     Route: 065

REACTIONS (11)
  - Suicidal ideation [Unknown]
  - Tremor [Unknown]
  - Somnolence [Unknown]
  - Condition aggravated [Unknown]
  - Drug interaction [Unknown]
  - Parkinsonism [Unknown]
  - Drug ineffective [Unknown]
  - Flatulence [Unknown]
  - Impaired work ability [Unknown]
  - Brain fog [Unknown]
  - Dizziness [Unknown]
